FAERS Safety Report 4467351-6 (Version None)
Quarter: 2004Q4

REPORT INFORMATION
  Report Type: 
  Country: None (occurrence: None)
  Receive Date: 20041004
  Receipt Date: 20040920
  Transmission Date: 20050328
  Serious: No
  Sender: FDA-Public Use
  Company Number: 203009

PATIENT
  Age: 55 Year
  Sex: Female

DRUGS (5)
  1. AVONEX [Suspect]
     Indication: MULTIPLE SCLEROSIS
     Dosage: 30 MCG QW IM
     Route: 030
     Dates: start: 19970101, end: 20040101
  2. AVONEX [Suspect]
     Indication: MULTIPLE SCLEROSIS
     Dosage: 30 MCG QW IM
     Route: 030
     Dates: start: 20040101, end: 20040601
  3. AVONEX [Suspect]
     Indication: MULTIPLE SCLEROSIS
     Dosage: 30 MCG QW IM
     Route: 030
     Dates: start: 20040601, end: 20040802
  4. GLUCOPHAGE ^UNS^ [Concomitant]
  5. CARDURA [Concomitant]

REACTIONS (15)
  - BODY TEMPERATURE INCREASED [None]
  - DISEASE RECURRENCE [None]
  - DIZZINESS [None]
  - FACIAL PARESIS [None]
  - FATIGUE [None]
  - HYPERTENSION [None]
  - HYPOAESTHESIA [None]
  - INJECTION SITE BURNING [None]
  - INJECTION SITE PAIN [None]
  - LOSS OF CONSCIOUSNESS [None]
  - NAUSEA [None]
  - SENSATION OF PRESSURE IN EAR [None]
  - TACHYCARDIA [None]
  - VERTIGO [None]
  - VISION BLURRED [None]
